FAERS Safety Report 4503470-3 (Version None)
Quarter: 2004Q4

REPORT INFORMATION
  Report Type: 
  Country: None (occurrence: None)
  Receive Date: 20041112
  Receipt Date: 20041104
  Transmission Date: 20050328
  Serious: Yes (Other)
  Sender: FDA-Public Use
  Company Number: USA-2004-0017472

PATIENT
  Sex: 0

DRUGS (1)
  1. OXYCONTIN [Suspect]
     Dosage: 10 MG, SEE TEXT, ORAL
     Route: 048

REACTIONS (2)
  - LOSS OF CONSCIOUSNESS [None]
  - STOOL ANALYSIS ABNORMAL [None]
